FAERS Safety Report 7009182-9 (Version None)
Quarter: 2010Q3

REPORT INFORMATION
  Report Type: 
  Country: None (occurrence: None)
  Receive Date: 20100923
  Receipt Date: 20100915
  Transmission Date: 20110219
  Serious: Yes (Other)
  Sender: FDA-Public Use
  Company Number: US-JNJFOC-20100905501

PATIENT
  Sex: Male
  Weight: 74.84 kg

DRUGS (6)
  1. LEVAQUIN [Suspect]
     Indication: INFECTION
     Route: 048
  2. PREDNISONE [Suspect]
     Indication: HEART TRANSPLANT REJECTION
     Route: 048
  3. CELLCEPT [Concomitant]
     Indication: HEART TRANSPLANT REJECTION
     Route: 048
  4. RAPAMUNE [Concomitant]
     Indication: HEART TRANSPLANT REJECTION
     Dosage: 2 MG ONE DAY AND 1 MG THE OTHER DAY
     Route: 048
  5. CRESTOR [Concomitant]
     Indication: BLOOD CHOLESTEROL
     Route: 048
  6. ASPIRIN [Concomitant]
     Indication: CARDIAC DISORDER
     Route: 048

REACTIONS (3)
  - ERYTHEMA NODOSUM [None]
  - OEDEMA PERIPHERAL [None]
  - TENDON PAIN [None]
